FAERS Safety Report 20776037 (Version 9)
Quarter: 2022Q3

REPORT INFORMATION
  Report Type: Report from Study
  Country: US (occurrence: US)
  Receive Date: 20220502
  Receipt Date: 20220928
  Transmission Date: 20221027
  Serious: Yes (Hospitalization, Other)
  Sender: FDA-Public Use
  Company Number: US-NOVARTISTESTPH-NVSC2022US100839

PATIENT
  Sex: Male

DRUGS (4)
  1. ENTRESTO [Suspect]
     Active Substance: SACUBITRIL\VALSARTAN
     Indication: Product used for unknown indication
     Dosage: 0.5 DOSAGE FORM, BID (49/51 MG 1/2 BID)
     Route: 065
  2. ENTRESTO [Suspect]
     Active Substance: SACUBITRIL\VALSARTAN
     Dosage: 1 DOSAGE FORM (49/51 MG)
     Route: 065
  3. UNSPECIFIED INGREDIENT [Concomitant]
     Active Substance: UNSPECIFIED INGREDIENT
     Indication: Product used for unknown indication
     Dosage: UNK
     Route: 065
  4. FARXIGA [Concomitant]
     Active Substance: DAPAGLIFLOZIN PROPANEDIOL
     Indication: Product used for unknown indication
     Dosage: UNK
     Route: 065

REACTIONS (19)
  - Animal bite [Unknown]
  - Localised infection [Unknown]
  - Urinary tract infection [Unknown]
  - Haematuria [Unknown]
  - Neuropathy peripheral [Unknown]
  - Deep vein thrombosis [Unknown]
  - Peripheral artery occlusion [Unknown]
  - Rhinorrhoea [Unknown]
  - Dyspepsia [Unknown]
  - Palpitations [Recovering/Resolving]
  - Dyspnoea [Unknown]
  - Dry skin [Unknown]
  - Cough [Not Recovered/Not Resolved]
  - Contusion [Unknown]
  - Procedural pain [Unknown]
  - Insomnia [Unknown]
  - Weight decreased [Unknown]
  - Dry throat [Unknown]
  - Wrong technique in product usage process [Unknown]
